FAERS Safety Report 4298482-1 (Version None)
Quarter: 2004Q1

REPORT INFORMATION
  Report Type: 
  Country: None (occurrence: None)
  Receive Date: 20040218
  Receipt Date: 20031013
  Transmission Date: 20041129
  Serious: Yes (Other)
  Sender: FDA-Public Use
  Company Number: US-BRISTOL-MYERS SQUIBB COMPANY-12413860

PATIENT
  Age: 37 Year
  Sex: Female

DRUGS (11)
  1. STADOL [Suspect]
     Indication: MIGRAINE
     Route: 030
     Dates: start: 19820401
  2. STADOL [Suspect]
     Indication: MIGRAINE WITHOUT AURA
     Route: 045
     Dates: start: 19920101, end: 19990101
  3. DARVOCET [Concomitant]
  4. PHENERGAN [Concomitant]
  5. RESTORIL [Concomitant]
  6. NUBAIN [Concomitant]
  7. SINEQUAN [Concomitant]
     Indication: INSOMNIA
  8. FIORICET [Concomitant]
  9. LITHIUM CARBONATE [Concomitant]
  10. DEPAKOTE [Concomitant]
  11. VISTARIL [Concomitant]

REACTIONS (1)
  - DEPENDENCE [None]
